FAERS Safety Report 22611568 (Version 1)
Quarter: 2023Q2

REPORT INFORMATION
  Report Type: Spontaneous
  Country: US (occurrence: US)
  Receive Date: 20230616
  Receipt Date: 20230616
  Transmission Date: 20230721
  Serious: No
  Sender: FDA-Public Use
  Company Number: US-BRISTOL-MYERS SQUIBB COMPANY-2023-085410

PATIENT
  Age: 49 Year
  Sex: Male
  Weight: 90.72 kg

DRUGS (1)
  1. LENALIDOMIDE [Suspect]
     Active Substance: LENALIDOMIDE
     Indication: Plasma cell myeloma
     Dosage: FREQ - DAILY 1-28
     Route: 048
     Dates: start: 20230523

REACTIONS (1)
  - Constipation [Unknown]
